FAERS Safety Report 11128441 (Version 1)
Quarter: 2015Q2

REPORT INFORMATION
  Report Type: Spontaneous
  Country: None (occurrence: None)
  Receive Date: 20150520
  Receipt Date: 20150520
  Transmission Date: 20150821
  Serious: No
  Sender: FDA-Public Use
  Company Number: None

PATIENT
  Age: 46 Year
  Sex: Female

DRUGS (1)
  1. TECFIDERA [Suspect]
     Active Substance: DIMETHYL FUMARATE
     Indication: MULTIPLE SCLEROSIS
     Route: 048
     Dates: start: 20150331

REACTIONS (6)
  - Constipation [None]
  - Abdominal pain [None]
  - Arthralgia [None]
  - Pain in extremity [None]
  - Bedridden [None]
  - Musculoskeletal pain [None]

NARRATIVE: CASE EVENT DATE: 20150515
